FAERS Safety Report 8078505-4 (Version None)
Quarter: 2012Q1

REPORT INFORMATION
  Report Type: 
  Country: None (occurrence: None)
  Receive Date: 20120123
  Receipt Date: 20120109
  Transmission Date: 20120608
  Serious: Yes (Hospitalization, Other)
  Sender: FDA-Public Use
  Company Number: 2012MA000552

PATIENT
  Age: 50 Year
  Sex: Female

DRUGS (7)
  1. IPRATROPIUM BROMIDE [Concomitant]
  2. METOPROLOL [Concomitant]
  3. ALBUTEROL [Concomitant]
  4. BROMIDE [Concomitant]
  5. KLONOPIN [Concomitant]
  6. HYDROCODONE BITARTRATE [Concomitant]
  7. FEVERALL [Suspect]
     Indication: PRODUCT USED FOR UNKNOWN INDICATION
     Dosage: 720 MG;Q8HR

REACTIONS (11)
  - ASTHENIA [None]
  - MALAISE [None]
  - BLOOD PRESSURE DIASTOLIC DECREASED [None]
  - RENAL FAILURE ACUTE [None]
  - RESPIRATORY ALKALOSIS [None]
  - METABOLIC ACIDOSIS [None]
  - HAEMODIALYSIS [None]
  - HYPERCHLORAEMIA [None]
  - DYSPNOEA [None]
  - PLATELET COUNT INCREASED [None]
  - PYROGLUTAMATE INCREASED [None]
